FAERS Safety Report 4486637-2 (Version None)
Quarter: 2004Q4

REPORT INFORMATION
  Report Type: 
  Country: None (occurrence: None)
  Receive Date: 20041021
  Receipt Date: 20041005
  Transmission Date: 20050328
  Serious: Yes (Other)
  Sender: FDA-Public Use
  Company Number: 2004234201CA

PATIENT
  Age: 74 Year
  Sex: Male

DRUGS (2)
  1. BEXTRA [Suspect]
     Dosage: ORAL
     Route: 048
  2. ADALAT [Concomitant]

REACTIONS (1)
  - RETINAL ARTERY THROMBOSIS [None]
